FAERS Safety Report 10521711 (Version 1)
Quarter: 2014Q4

REPORT INFORMATION
  Report Type: Report from Study
  Country: CA (occurrence: CA)
  Receive Date: 20141016
  Receipt Date: 20141016
  Transmission Date: 20150528
  Serious: Yes (Other)
  Sender: FDA-Public Use
  Company Number: CA-AMGEN-CANSL2014078547

PATIENT
  Age: 69 Year
  Sex: Female

DRUGS (5)
  1. VITAMIN D                          /00107901/ [Concomitant]
     Active Substance: ERGOCALCIFEROL
     Dosage: 10000 IU, QWK
     Route: 048
  2. CALCIUM [Concomitant]
     Active Substance: CALCIUM
     Dosage: 500 MG, QD
     Route: 048
  3. TEGRETOL [Concomitant]
     Active Substance: CARBAMAZEPINE
     Indication: EPILEPSY
     Dosage: 30 MG, BID
     Route: 048
  4. PROLIA [Suspect]
     Active Substance: DENOSUMAB
     Indication: ARTHRITIS
     Dosage: 60 MG, Q6MO
     Route: 058
     Dates: start: 20120217
  5. OMEGA 3                            /01333901/ [Concomitant]
     Dosage: UNK UNK, QD
     Route: 048

REACTIONS (1)
  - Arthropathy [Not Recovered/Not Resolved]
